FAERS Safety Report 17606546 (Version 3)
Quarter: 2021Q1

REPORT INFORMATION
  Report Type: Report from Study
  Country: CA (occurrence: CA)
  Receive Date: 20200331
  Receipt Date: 20210125
  Transmission Date: 20210419
  Serious: Yes (Hospitalization, Other)
  Sender: FDA-Public Use
  Company Number: CA-SHIRE-CA202011056

PATIENT
  Sex: Male

DRUGS (4)
  1. GAMMAGARD LIQUID [Suspect]
     Active Substance: HUMAN IMMUNOGLOBULIN G
     Indication: MYASTHENIA GRAVIS
     Dosage: 27 GRAM, 1X/WEEK
     Route: 058
     Dates: start: 20190408
  2. AZATHIOPRINE. [Suspect]
     Active Substance: AZATHIOPRINE
     Indication: PRODUCT USED FOR UNKNOWN INDICATION
     Route: 065
  3. GAMMAGARD [Concomitant]
     Active Substance: HUMAN IMMUNOGLOBULIN G
     Indication: PRODUCT USED FOR UNKNOWN INDICATION
  4. PREDNISONE. [Concomitant]
     Active Substance: PREDNISONE
     Indication: PRODUCT USED FOR UNKNOWN INDICATION

REACTIONS (9)
  - Hypercholesterolaemia [Unknown]
  - Infusion site bruising [Unknown]
  - Incorrect drug administration rate [Unknown]
  - Amnesia [Recovering/Resolving]
  - Illness [Recovering/Resolving]
  - End stage renal disease [Unknown]
  - Impaired gastric emptying [Recovering/Resolving]
  - Asthma [Unknown]
  - Intentional product use issue [Unknown]
